FAERS Safety Report 12575408 (Version 2)
Quarter: 2017Q2

REPORT INFORMATION
  Report Type: Spontaneous
  Country: US (occurrence: US)
  Receive Date: 20160720
  Receipt Date: 20170623
  Transmission Date: 20170830
  Serious: No
  Sender: FDA-Public Use
  Company Number: US-ASTELLAS-2016US012860

PATIENT
  Sex: Female

DRUGS (2)
  1. VESICARE [Suspect]
     Active Substance: SOLIFENACIN SUCCINATE
     Indication: HYPERTONIC BLADDER
     Route: 048
     Dates: start: 20160419
  2. VESICARE [Suspect]
     Active Substance: SOLIFENACIN SUCCINATE
     Indication: URINARY INCONTINENCE
     Route: 048
     Dates: end: 20170417

REACTIONS (17)
  - Back disorder [Unknown]
  - Pollakiuria [Not Recovered/Not Resolved]
  - Spondylitis [Unknown]
  - Plantar fasciitis [Unknown]
  - Arthralgia [Unknown]
  - Vitamin D decreased [Unknown]
  - Bone pain [Unknown]
  - White blood cell count decreased [Unknown]
  - Drug ineffective [Not Recovered/Not Resolved]
  - Low density lipoprotein increased [Unknown]
  - Oral herpes [Unknown]
  - Vitamin B complex deficiency [Unknown]
  - Emotional distress [Not Recovered/Not Resolved]
  - Enuresis [Not Recovered/Not Resolved]
  - Urinary retention [Not Recovered/Not Resolved]
  - Drug dose omission [Unknown]
  - High density lipoprotein decreased [Unknown]
